FAERS Safety Report 4777687-7 (Version None)
Quarter: 2005Q3

REPORT INFORMATION
  Report Type: 
  Country: None (occurrence: None)
  Receive Date: 20050921
  Receipt Date: 20050902
  Transmission Date: 20060218
  Serious: Yes (Other)
  Sender: FDA-Public Use
  Company Number: USA0509107226

PATIENT
  Age: 74 Year
  Sex: Female

DRUGS (3)
  1. EVISTA [Suspect]
     Indication: OSTEOPOROSIS
  2. TOPROL-XL [Concomitant]
  3. TIAZAC (DILTIAZE HYDROCHLORIDE) [Concomitant]

REACTIONS (1)
  - ATRIAL FIBRILLATION [None]
